FAERS Safety Report 13253754 (Version 1)
Quarter: 2017Q1

REPORT INFORMATION
  Report Type: Spontaneous
  Country: IT (occurrence: IT)
  Receive Date: 20170220
  Receipt Date: 20170220
  Transmission Date: 20170428
  Serious: Yes (Other)
  Sender: FDA-Public Use
  Company Number: IT-MYLANLABS-2017M1010045

PATIENT

DRUGS (1)
  1. PACLITAXEL MYLAN GENERICS 6 MG/ML [Suspect]
     Active Substance: PACLITAXEL
     Indication: BREAST NEOPLASM
     Dosage: 144 MG, CYCLE
     Route: 042
     Dates: start: 20160726, end: 20170208

REACTIONS (3)
  - Gait disturbance [Unknown]
  - Dysaesthesia [Unknown]
  - Ototoxicity [Unknown]

NARRATIVE: CASE EVENT DATE: 20170208
